FAERS Safety Report 4320306-4 (Version None)
Quarter: 2004Q1

REPORT INFORMATION
  Report Type: 
  Country: None (occurrence: None)
  Receive Date: 20040317
  Receipt Date: 20040304
  Transmission Date: 20041129
  Serious: Yes (Death)
  Sender: FDA-Public Use
  Company Number: RS003991-AUS

PATIENT
  Age: 85 Year
  Sex: Female
  Weight: 46 kg

DRUGS (2)
  1. RABEPRAZOLE SODIUM [Suspect]
     Dosage: 20 MG, ORAL
     Route: 048
  2. CELEBREX [Concomitant]

REACTIONS (3)
  - CARDIAC FAILURE [None]
  - NEPHRITIS INTERSTITIAL [None]
  - PULMONARY OEDEMA [None]
